FAERS Safety Report 5212423-1 (Version None)
Quarter: 2007Q1

REPORT INFORMATION
  Report Type: 
  Country: None (occurrence: None)
  Receive Date: 20070118
  Receipt Date: 20070109
  Transmission Date: 20070707
  Serious: Yes (Other)
  Sender: FDA-Public Use
  Company Number: US-PFIZER INC-2005116477

PATIENT
  Sex: Male

DRUGS (7)
  1. NEURONTIN [Suspect]
     Indication: BIPOLAR DISORDER
  2. DEPAKOTE [Concomitant]
  3. TOPAMAX [Concomitant]
  4. SERZONE [Concomitant]
  5. PROZAC [Concomitant]
  6. REMERON [Concomitant]
  7. FLUOXETINE [Concomitant]

REACTIONS (16)
  - ABNORMAL BEHAVIOUR [None]
  - ANGER [None]
  - CONFUSIONAL STATE [None]
  - COORDINATION ABNORMAL [None]
  - DEPRESSION [None]
  - DISTURBANCE IN ATTENTION [None]
  - DRUG INEFFECTIVE [None]
  - FEAR [None]
  - HYPOMANIA [None]
  - ILLUSION [None]
  - IMPULSIVE BEHAVIOUR [None]
  - INSOMNIA [None]
  - PAIN [None]
  - SELF ESTEEM DECREASED [None]
  - SUICIDE ATTEMPT [None]
  - THEFT [None]
